FAERS Safety Report 7676833-5 (Version None)
Quarter: 2011Q3

REPORT INFORMATION
  Report Type: 
  Country: None (occurrence: None)
  Receive Date: 20110811
  Receipt Date: 20110729
  Transmission Date: 20111222
  Serious: Yes (Hospitalization)
  Sender: FDA-Public Use
  Company Number: US-CELGENEUS-163-21880-11080061

PATIENT
  Sex: Female

DRUGS (11)
  1. REVLIMID [Suspect]
     Dosage: 10-25MG
     Route: 048
     Dates: start: 20100210
  2. LEVOTHYROXINE SODIUM [Concomitant]
     Route: 065
  3. SERTRALINE HYDROCHLORIDE [Concomitant]
     Route: 065
  4. REVLIMID [Suspect]
     Dosage: 10 MILLIGRAM
     Route: 048
     Dates: start: 20110601
  5. GLIPIZIDE [Concomitant]
     Route: 065
  6. METFORMIN HCL [Concomitant]
     Route: 065
  7. LISINOPRIL [Concomitant]
     Route: 065
  8. REVLIMID [Suspect]
     Dosage: 25 MILLIGRAM
     Route: 048
     Dates: start: 20090401
  9. HUMULIN R [Concomitant]
     Route: 065
  10. OMEPRAZOLE [Concomitant]
     Route: 065
  11. MULTI-VITAMINS [Concomitant]
     Route: 065

REACTIONS (4)
  - CARPAL TUNNEL SYNDROME [None]
  - DIARRHOEA [None]
  - CLOSTRIDIAL INFECTION [None]
  - PNEUMONIA [None]
